FAERS Safety Report 9373066 (Version 1)
Quarter: 2013Q2

REPORT INFORMATION
  Report Type: Spontaneous
  Country: US (occurrence: US)
  Receive Date: 20130627
  Receipt Date: 20130627
  Transmission Date: 20140414
  Serious: Yes (Other)
  Sender: FDA-Public Use
  Company Number: US-PFIZER INC-2013187578

PATIENT
  Age: 56 Year
  Sex: Female
  Weight: 63 kg

DRUGS (2)
  1. PREMARIN [Suspect]
     Indication: ATROPHIC VULVOVAGINITIS
     Dosage: 0.5 G, ALTERNATE DAY
     Route: 067
     Dates: start: 201304, end: 201305
  2. IBUPROFEN [Concomitant]
     Dosage: UNK, AS NEEDED

REACTIONS (4)
  - Rectal haemorrhage [Recovering/Resolving]
  - Drug intolerance [Recovering/Resolving]
  - Vaginal discharge [Recovering/Resolving]
  - Vulvovaginal discomfort [Recovering/Resolving]
